FAERS Safety Report 7425500-1 (Version None)
Quarter: 2011Q2

REPORT INFORMATION
  Report Type: 
  Country: None (occurrence: None)
  Receive Date: 20110418
  Receipt Date: 20110418
  Transmission Date: 20111010
  Serious: No
  Sender: FDA-Public Use
  Company Number: None

PATIENT

DRUGS (2)
  1. TRAMADOL HCL [Suspect]
  2. TRAZODONE HCL [Suspect]

REACTIONS (5)
  - DRUG LABEL CONFUSION [None]
  - PRODUCT PACKAGING ISSUE [None]
  - MEDICATION ERROR [None]
  - PRODUCT CONTAINER ISSUE [None]
  - DRUG NAME CONFUSION [None]
